FAERS Safety Report 6804154-9 (Version None)
Quarter: 2010Q2

REPORT INFORMATION
  Report Type: 
  Country: None (occurrence: None)
  Receive Date: 20100628
  Receipt Date: 20070315
  Transmission Date: 20101027
  Serious: Yes (Other)
  Sender: FDA-Public Use
  Company Number: US-PFIZER INC-2006149353

PATIENT
  Sex: Female

DRUGS (2)
  1. GEODON [Suspect]
     Indication: BIPOLAR II DISORDER
     Route: 048
     Dates: start: 20061101
  2. GEODON [Suspect]
     Indication: ANXIETY DISORDER

REACTIONS (2)
  - ANXIETY DISORDER [None]
  - TARDIVE DYSKINESIA [None]
